FAERS Safety Report 11911980 (Version 1)
Quarter: 2016Q1

REPORT INFORMATION
  Report Type: Spontaneous
  Country: GB (occurrence: GB)
  Receive Date: 20160112
  Receipt Date: 20160112
  Transmission Date: 20160526
  Serious: Yes (Other)
  Sender: FDA-Public Use
  Company Number: GB-BAUSCH-BL-2016-000330

PATIENT
  Age: 36 Year
  Sex: Female

DRUGS (7)
  1. NORETHISTERONE [Suspect]
     Active Substance: NORETHINDRONE
     Indication: POLYCYSTIC OVARIES
     Dosage: FOR 3 WEEKS EACH MONTH
     Route: 065
     Dates: start: 2010
  2. RIBAVIRIN. [Interacting]
     Active Substance: RIBAVIRIN
     Indication: ANTIVIRAL TREATMENT
     Route: 065
     Dates: start: 201408
  3. NORETHISTERONE [Suspect]
     Active Substance: NORETHINDRONE
     Route: 065
     Dates: start: 201407
  4. LEVOTHYROXINE. [Concomitant]
     Active Substance: LEVOTHYROXINE
     Indication: PRODUCT USED FOR UNKNOWN INDICATION
  5. DACLATASVIR. [Suspect]
     Active Substance: DACLATASVIR
     Indication: ANTIVIRAL TREATMENT
     Route: 065
     Dates: start: 201408
  6. MINI-PILL [Suspect]
     Active Substance: NORETHINDRONE
     Indication: POLYCYSTIC OVARIES
  7. RIGEVIDON [Suspect]
     Active Substance: ETHINYL ESTRADIOL\LEVONORGESTREL
     Indication: POLYCYSTIC OVARIES
     Dosage: LEVONORGESTREL 150 ?G / ETHINYLESTRADIOL 30 ?G
     Dates: start: 20140731

REACTIONS (2)
  - Drug-induced liver injury [Not Recovered/Not Resolved]
  - Drug interaction [Unknown]
